FAERS Safety Report 19461307 (Version 2)
Quarter: 2021Q2

REPORT INFORMATION
  Report Type: Spontaneous
  Country: GB (occurrence: GB)
  Receive Date: 20210625
  Receipt Date: 20210630
  Transmission Date: 20210717
  Serious: Yes (Other)
  Sender: FDA-Public Use
  Company Number: GB-TEVA-2021-GB-1925027

PATIENT
  Age: 40 Year
  Sex: Female
  Weight: 67 kg

DRUGS (3)
  1. SPIRIVA [Concomitant]
     Active Substance: TIOTROPIUM BROMIDE MONOHYDRATE
     Dosage: 2 DOSAGE FORMS DAILY; 2.5MG/DOSE. PUFFS
     Route: 055
     Dates: start: 20210412, end: 20210527
  2. SALBUTAMOL [Concomitant]
     Active Substance: ALBUTEROL
     Dosage: 100MICROGRAMS/DOSE INHALER CFC FREE, 2 DOSAGE FORMS
     Route: 055
     Dates: start: 20210603
  3. MONTELUKAST [Suspect]
     Active Substance: MONTELUKAST SODIUM
     Dosage: 10 MILLIGRAM DAILY; AT NIGHT
     Route: 048
     Dates: start: 20200806, end: 20210212

REACTIONS (5)
  - Petechiae [Unknown]
  - Vasculitis [Unknown]
  - Polyneuropathy [Unknown]
  - Eosinophilic granulomatosis with polyangiitis [Not Recovered/Not Resolved]
  - Mononeuropathy multiplex [Unknown]

NARRATIVE: CASE EVENT DATE: 20201015
